FAERS Safety Report 19150144 (Version 6)
Quarter: 2022Q3

REPORT INFORMATION
  Report Type: Report from Study
  Country: US (occurrence: US)
  Receive Date: 20210417
  Receipt Date: 20220704
  Transmission Date: 20221027
  Serious: Yes (Hospitalization)
  Sender: FDA-Public Use
  Company Number: NVSC2021US084887

PATIENT
  Sex: Female

DRUGS (1)
  1. MAYZENT [Suspect]
     Active Substance: SIPONIMOD
     Indication: Product used for unknown indication
     Dosage: 2 MG, QD
     Route: 048

REACTIONS (9)
  - Fall [Unknown]
  - Chills [Unknown]
  - Dizziness [Unknown]
  - Fatigue [Unknown]
  - Lower limb fracture [Unknown]
  - Impaired healing [Unknown]
  - Foot fracture [Unknown]
  - Gait inability [Unknown]
  - Fracture [Unknown]
